FAERS Safety Report 7870711-4 (Version None)
Quarter: 2011Q4

REPORT INFORMATION
  Report Type: 
  Country: None (occurrence: None)
  Receive Date: 20111029
  Receipt Date: 20110221
  Transmission Date: 20120403
  Serious: No
  Sender: FDA-Public Use
  Company Number: US-AMGEN-USASP2011009986

PATIENT
  Age: 62 Year
  Sex: Female

DRUGS (1)
  1. ENBREL [Suspect]
     Indication: RHEUMATOID ARTHRITIS
     Dosage: 50 MG, QWK
     Dates: start: 20090401

REACTIONS (6)
  - RHINORRHOEA [None]
  - CHILLS [None]
  - INFLUENZA LIKE ILLNESS [None]
  - DIARRHOEA [None]
  - PYREXIA [None]
  - NASAL CONGESTION [None]
